FAERS Safety Report 7896046-1 (Version None)
Quarter: 2011Q4

REPORT INFORMATION
  Report Type: 
  Country: None (occurrence: None)
  Receive Date: 20111106
  Receipt Date: 20110905
  Transmission Date: 20120403
  Serious: Yes (Hospitalization, Other)
  Sender: FDA-Public Use
  Company Number: US-AMGEN-USASP2011043222

PATIENT
  Sex: Female

DRUGS (1)
  1. ENBREL [Suspect]
     Indication: RHEUMATOID ARTHRITIS
     Dosage: UNK UNK, QWK
     Dates: start: 20101101, end: 20110201

REACTIONS (6)
  - CHILLS [None]
  - IRRITABILITY [None]
  - INFECTED CYST [None]
  - UTERINE INFECTION [None]
  - SKIN INFECTION [None]
  - DIZZINESS POSTURAL [None]
